FAERS Safety Report 7442316-0 (Version None)
Quarter: 2011Q2

REPORT INFORMATION
  Report Type: 
  Country: None (occurrence: None)
  Receive Date: 20110428
  Receipt Date: 20110421
  Transmission Date: 20111010
  Serious: Yes (Hospitalization)
  Sender: FDA-Public Use
  Company Number: JP-ROCHE-621991

PATIENT
  Sex: Male
  Weight: 51 kg

DRUGS (38)
  1. TOCILIZUMAB [Suspect]
     Route: 041
     Dates: start: 20091129, end: 20091129
  2. TOCILIZUMAB [Suspect]
     Route: 041
     Dates: start: 20100709, end: 20100709
  3. TAKEPRON [Concomitant]
     Route: 048
     Dates: start: 20090904
  4. TOCILIZUMAB [Suspect]
     Indication: RHEUMATOID ARTHRITIS
     Route: 041
     Dates: start: 20080904, end: 20080904
  5. PARIET [Concomitant]
     Route: 048
  6. MICARDIS [Concomitant]
     Route: 048
  7. CRESTOR [Concomitant]
     Route: 048
     Dates: start: 20091225
  8. TOCILIZUMAB [Suspect]
     Route: 041
     Dates: start: 20100806, end: 20100806
  9. HEPARIN [Suspect]
     Indication: THROMBOSIS PROPHYLAXIS
     Route: 065
     Dates: start: 20090302, end: 20090307
  10. ONEALFA [Concomitant]
     Dosage: ORAL FORMULATION (NOS)
     Route: 048
  11. BENET [Concomitant]
     Route: 048
  12. ULCERLMIN [Concomitant]
     Route: 048
  13. WARFARIN [Concomitant]
     Dosage: DRUG NAME: WARFARIN POTASSIUM
     Route: 048
  14. TOCILIZUMAB [Suspect]
     Route: 041
     Dates: start: 20081003, end: 20081003
  15. TOCILIZUMAB [Suspect]
     Route: 041
     Dates: start: 20081226, end: 20081226
  16. TOCILIZUMAB [Suspect]
     Route: 041
     Dates: start: 20090123, end: 20090123
  17. TOCILIZUMAB [Suspect]
     Route: 041
     Dates: start: 20090220, end: 20090220
  18. TOCILIZUMAB [Suspect]
     Route: 041
     Dates: start: 20090501, end: 20090501
  19. TOCILIZUMAB [Suspect]
     Route: 041
     Dates: start: 20091002, end: 20091002
  20. TOCILIZUMAB [Suspect]
     Route: 041
     Dates: start: 20100611, end: 20100611
  21. WARFARIN [Concomitant]
     Route: 048
     Dates: start: 20090904
  22. ASPARA-CA [Concomitant]
     Route: 048
  23. TOCILIZUMAB [Suspect]
     Route: 041
     Dates: start: 20090904, end: 20090904
  24. TOCILIZUMAB [Suspect]
     Route: 041
     Dates: start: 20100416, end: 20100416
  25. TOCILIZUMAB [Suspect]
     Route: 041
     Dates: start: 20100514, end: 20100514
  26. PREDNISOLONE [Suspect]
     Indication: RHEUMATOID ARTHRITIS
     Route: 048
     Dates: start: 20070406
  27. RIVOTRIL [Concomitant]
     Route: 048
  28. TOCILIZUMAB [Suspect]
     Route: 041
     Dates: start: 20090529, end: 20090529
  29. TOCILIZUMAB [Suspect]
     Route: 041
     Dates: start: 20090626, end: 20090626
  30. TOCILIZUMAB [Suspect]
     Route: 041
     Dates: start: 20091225, end: 20091225
  31. VOLTAREN [Concomitant]
     Route: 054
  32. TOCILIZUMAB [Suspect]
     Route: 041
     Dates: start: 20100319, end: 20100319
  33. TOCILIZUMAB [Suspect]
     Route: 041
     Dates: start: 20081031, end: 20081031
  34. TOCILIZUMAB [Suspect]
     Route: 041
     Dates: start: 20081128, end: 20081128
  35. TOCILIZUMAB [Suspect]
     Route: 041
     Dates: start: 20091030, end: 20091030
  36. TOCILIZUMAB [Suspect]
     Route: 041
     Dates: start: 20100122, end: 20100122
  37. FERROUS CITRATE [Concomitant]
     Dosage: ORAL FORMULATION (NOS)
     Route: 048
  38. CONIEL [Concomitant]
     Route: 048

REACTIONS (5)
  - DEEP VEIN THROMBOSIS [None]
  - SHOCK HAEMORRHAGIC [None]
  - PULMONARY ARTERY THROMBOSIS [None]
  - ENTEROCOLITIS BACTERIAL [None]
  - CELLULITIS [None]
